FAERS Safety Report 6399390-2 (Version None)
Quarter: 2009Q4

REPORT INFORMATION
  Report Type: 
  Country: None (occurrence: None)
  Receive Date: 20091014
  Receipt Date: 20091009
  Transmission Date: 20100525
  Serious: Yes (Other)
  Sender: FDA-Public Use
  Company Number: US-JNJFOC-20091002526

PATIENT
  Age: 11 Month
  Sex: Male
  Weight: 9.53 kg

DRUGS (5)
  1. TYLENOL (CAPLET) [Suspect]
     Route: 048
  2. TYLENOL (CAPLET) [Suspect]
     Indication: PYREXIA
     Dosage: 120 MG EVERY 4-6 HOURS
     Route: 048
  3. TYLENOL (CAPLET) [Suspect]
     Route: 048
  4. TYLENOL (CAPLET) [Suspect]
     Indication: PYREXIA
     Dosage: 120 MG EVERY 4-6 HOURS
     Route: 048
  5. CONCENTRATED MOTRIN INFANTS [Concomitant]
     Indication: PYREXIA

REACTIONS (2)
  - EAR INFECTION [None]
  - TRANSMISSION OF AN INFECTIOUS AGENT VIA A MEDICINAL PRODUCT [None]
